FAERS Safety Report 10517153 (Version 1)
Quarter: 2014Q4

REPORT INFORMATION
  Report Type: Spontaneous
  Country: CN (occurrence: CN)
  Receive Date: 20141014
  Receipt Date: 20141014
  Transmission Date: 20150528
  Serious: Yes (Hospitalization)
  Sender: FDA-Public Use
  Company Number: CN-ALLERGAN-1421741US

PATIENT
  Sex: Female

DRUGS (1)
  1. BOTOX [Suspect]
     Active Substance: ONABOTULINUMTOXINA
     Indication: JAW DISORDER
     Dosage: UNK UNK, SINGLE
     Route: 030

REACTIONS (4)
  - Chills [Recovered/Resolved]
  - Blood pressure decreased [Recovered/Resolved]
  - Off label use [Unknown]
  - Tremor [Recovered/Resolved]

NARRATIVE: CASE EVENT DATE: 201408
